FAERS Safety Report 4917626-9 (Version None)
Quarter: 2006Q1

REPORT INFORMATION
  Report Type: 
  Country: None (occurrence: None)
  Receive Date: 20060215
  Receipt Date: 20060208
  Transmission Date: 20060701
  Serious: No
  Sender: FDA-Public Use
  Company Number: C06-015

PATIENT
  Age: 53 Year
  Sex: Male

DRUGS (1)
  1. PENTAZOCINE AND NALOXONE TABLETS [Suspect]
     Indication: PAIN IN EXTREMITY

REACTIONS (3)
  - DRUG INEFFECTIVE [None]
  - PAIN IN EXTREMITY [None]
  - PHARMACEUTICAL PRODUCT COMPLAINT [None]
